FAERS Safety Report 10591550 (Version 1)
Quarter: 2014Q4

REPORT INFORMATION
  Report Type: Spontaneous
  Country: US (occurrence: US)
  Receive Date: 20141118
  Receipt Date: 20141118
  Transmission Date: 20150529
  Serious: No
  Sender: FDA-Public Use
  Company Number: US-PFIZER INC-2014315286

PATIENT
  Sex: Female

DRUGS (1)
  1. EFFEXOR XR [Suspect]
     Active Substance: VENLAFAXINE HYDROCHLORIDE
     Dosage: UNK

REACTIONS (9)
  - Decreased appetite [Unknown]
  - Head discomfort [Unknown]
  - Nausea [Unknown]
  - Sneezing [Unknown]
  - Nasal congestion [Unknown]
  - Feeling hot [Unknown]
  - Dizziness [Unknown]
  - Presyncope [Unknown]
  - Mydriasis [Unknown]
